FAERS Safety Report 13516952 (Version 1)
Quarter: 2017Q2

REPORT INFORMATION
  Report Type: Spontaneous
  Country: US (occurrence: US)
  Receive Date: 20170505
  Receipt Date: 20170505
  Transmission Date: 20170830
  Serious: No
  Sender: FDA-Public Use
  Company Number: US-PFIZER INC-2017195526

PATIENT
  Sex: Female

DRUGS (1)
  1. IBRANCE [Suspect]
     Active Substance: PALBOCICLIB
     Indication: BREAST CANCER METASTATIC
     Dosage: UNK

REACTIONS (7)
  - Insomnia [Unknown]
  - Chest discomfort [Unknown]
  - Arthralgia [Unknown]
  - Oral pruritus [Unknown]
  - Alopecia [Unknown]
  - Madarosis [Unknown]
  - Intentional product misuse [Unknown]
